FAERS Safety Report 5625899-2 (Version None)
Quarter: 2008Q1

REPORT INFORMATION
  Report Type: 
  Country: None (occurrence: None)
  Receive Date: 20080214
  Receipt Date: 20080201
  Transmission Date: 20080703
  Serious: Yes (Hospitalization, Disabling)
  Sender: FDA-Public Use
  Company Number: GB-AMGEN-US246813

PATIENT
  Sex: Female
  Weight: 52 kg

DRUGS (6)
  1. ENBREL [Suspect]
     Indication: RHEUMATOID ARTHRITIS
     Route: 058
     Dates: start: 20040315, end: 20070831
  2. LANSOPRAZOLE [Concomitant]
     Indication: GASTROOESOPHAGEAL REFLUX DISEASE
     Route: 048
  3. PROPRANOLOL [Concomitant]
     Indication: BLOOD PRESSURE ABNORMAL
     Route: 048
  4. PROPRANOLOL [Concomitant]
     Indication: MIGRAINE
  5. SULFASALAZINE [Concomitant]
     Indication: RHEUMATOID ARTHRITIS
     Route: 048
  6. IBUPROFEN [Concomitant]
     Indication: PAIN
     Route: 048

REACTIONS (1)
  - PULMONARY TUBERCULOSIS [None]
